FAERS Safety Report 4615863-4 (Version None)
Quarter: 2005Q2

REPORT INFORMATION
  Report Type: 
  Country: None (occurrence: None)
  Receive Date: 20050311
  Receipt Date: 20041104
  Transmission Date: 20051028
  Serious: No
  Sender: FDA-Public Use
  Company Number: 2004-BP-11347BP

PATIENT
  Age: 81 Year
  Sex: Female

DRUGS (8)
  1. SPIRIVA [Suspect]
     Indication: CHRONIC OBSTRUCTIVE PULMONARY DISEASE
     Dosage: 18 MCG (18 MCG), IH
     Route: 055
     Dates: start: 20041001
  2. DILTIAZEM [Concomitant]
  3. ACIPHEX [Concomitant]
  4. RYTHMOL [Concomitant]
  5. LANOXIN [Concomitant]
  6. HYDROCHLOROTHIAZIDE [Concomitant]
  7. NITROGLYCERIN [Concomitant]
  8. FLONASE [Concomitant]

REACTIONS (2)
  - PLEURISY [None]
  - VAGINAL MYCOSIS [None]
